FAERS Safety Report 9714130 (Version 1)
Quarter: 2013Q4

REPORT INFORMATION
  Report Type: Spontaneous
  Country: US (occurrence: US)
  Receive Date: 20131126
  Receipt Date: 20131126
  Transmission Date: 20140711
  Serious: No
  Sender: FDA-Public Use
  Company Number: US-GILEAD-2008-0018842

PATIENT
  Sex: Female
  Weight: 57.61 kg

DRUGS (10)
  1. LETAIRIS [Suspect]
     Indication: PULMONARY ARTERIAL HYPERTENSION
     Dates: start: 20080709
  2. REVATIO [Concomitant]
  3. FLOLAN [Concomitant]
  4. ALDACTAZIDE [Concomitant]
  5. WARFARIN [Concomitant]
  6. POTASSIUM CHLORIDE [Concomitant]
  7. SOTALOL [Concomitant]
  8. LASIX [Concomitant]
  9. ADVAIR [Concomitant]
  10. FERROUS SULFATE [Concomitant]

REACTIONS (1)
  - Pruritus [None]
